FAERS Safety Report 21126446 (Version 2)
Quarter: 2022Q3

REPORT INFORMATION
  Report Type: Spontaneous
  Country: IT (occurrence: IT)
  Receive Date: 20220725
  Receipt Date: 20220803
  Transmission Date: 20221027
  Serious: Yes (Hospitalization, Other)
  Sender: FDA-Public Use
  Company Number: None

PATIENT
  Age: 23 Year
  Sex: Female

DRUGS (4)
  1. SERTRALINE [Suspect]
     Active Substance: SERTRALINE HYDROCHLORIDE
     Indication: Drug abuse
     Dosage: 16 DOSAGE FORM (16 CP, NON NOTO IL DOSAGGIO)
     Route: 048
     Dates: start: 20220403, end: 20220403
  2. LORAZEPAM [Suspect]
     Active Substance: LORAZEPAM
     Indication: Drug abuse
     Dosage: UNK (FORMA FARMACEUTICA, DOSAGGIO E NUMERO UNIT? POSOLOGICHE NON DISPONIBILI)
     Route: 048
     Dates: start: 20220402, end: 20220402
  3. IBUPROFEN [Suspect]
     Active Substance: IBUPROFEN
     Indication: Drug abuse
     Dosage: UNK (NUMERO CP ASSUNTE  E DOSAGGIO NON DISPONIBILI (UN BLISTER))
     Route: 048
     Dates: start: 20220402, end: 20220402
  4. BETAMETHASONE SODIUM PHOSPHATE [Suspect]
     Active Substance: BETAMETHASONE SODIUM PHOSPHATE
     Indication: Drug abuse
     Dosage: UNK 9NUMERO CP ASSUNTE E DOSAGGIO NON DISPONIBILI)
     Route: 048
     Dates: start: 20220402, end: 20220402

REACTIONS (5)
  - Aphasia [Recovering/Resolving]
  - Tremor [Recovering/Resolving]
  - Vomiting [Recovering/Resolving]
  - Tachycardia [Recovering/Resolving]
  - Drug abuse [Recovered/Resolved]

NARRATIVE: CASE EVENT DATE: 20220402
